FAERS Safety Report 7461974-8 (Version None)
Quarter: 2011Q2

REPORT INFORMATION
  Report Type: 
  Country: None (occurrence: None)
  Receive Date: 20110506
  Receipt Date: 20110323
  Transmission Date: 20111010
  Serious: Yes (Other)
  Sender: FDA-Public Use
  Company Number: CA-BAYER-2011-017968

PATIENT
  Sex: Female

DRUGS (2)
  1. BETASERON [Suspect]
     Dosage: UNK
     Dates: end: 20101201
  2. BETASERON [Suspect]
     Dosage: UNK
     Dates: start: 20101201

REACTIONS (9)
  - INCONTINENCE [None]
  - ABDOMINAL DISCOMFORT [None]
  - MULTIPLE SCLEROSIS RELAPSE [None]
  - RASH MACULAR [None]
  - ASTHENIA [None]
  - AFFECT LABILITY [None]
  - SPLENOMEGALY [None]
  - AMNESIA [None]
  - INJECTION SITE PAIN [None]
